FAERS Safety Report 6271940-6 (Version None)
Quarter: 2009Q3

REPORT INFORMATION
  Report Type: 
  Country: None (occurrence: None)
  Receive Date: 20090715
  Receipt Date: 20090702
  Transmission Date: 20100115
  Serious: Yes (Death)
  Sender: FDA-Public Use
  Company Number: 2009AL002564

PATIENT
  Age: 73 Year
  Sex: Female

DRUGS (30)
  1. DIGOXIN [Suspect]
     Dosage: 0.125MG, DAILY, PO
     Route: 048
     Dates: start: 20070617, end: 20080501
  2. ALPRAZOLAM [Concomitant]
  3. NITROGLYCERIN [Concomitant]
  4. PLAVIX [Concomitant]
  5. LIPITOR [Concomitant]
  6. FUROSEMIDE [Concomitant]
  7. SPIRONOLACTONE [Concomitant]
  8. LISINOPRIL [Concomitant]
  9. METOPROLOL SUCCINATE [Concomitant]
  10. TEMAZEPAM [Concomitant]
  11. POTASSIUM CHLORIDE [Concomitant]
  12. FLOMAX [Concomitant]
  13. COREG [Concomitant]
  14. LEXAPRO [Concomitant]
  15. BACMIN [Concomitant]
  16. BIDIL [Concomitant]
  17. BONIVA [Concomitant]
  18. AMOXICILLN [Concomitant]
  19. ANHEDIST [Concomitant]
  20. CARVEDILOL [Concomitant]
  21. METOLAZONE [Concomitant]
  22. FERROUS SULFATE TAB [Concomitant]
  23. PROVENTIL-HFA [Concomitant]
  24. TIZANIDINE HCL [Concomitant]
  25. TRAMADOL [Concomitant]
  26. PROMETHAZINE [Concomitant]
  27. SULFAMETHOXAZOLE [Concomitant]
  28. DIPHENOXYLATE [Concomitant]
  29. AZITHROMYCIN [Concomitant]
  30. VYTORIN [Concomitant]

REACTIONS (4)
  - ECONOMIC PROBLEM [None]
  - ILL-DEFINED DISORDER [None]
  - INJURY [None]
  - SURGERY [None]
